FAERS Safety Report 4824978-7 (Version None)
Quarter: 2005Q4

REPORT INFORMATION
  Report Type: 
  Country: None (occurrence: None)
  Receive Date: 20051110
  Receipt Date: 20050601
  Transmission Date: 20060501
  Serious: Yes (Death, Hospitalization)
  Sender: FDA-Public Use
  Company Number: US-MERCK-0506USA00742

PATIENT
  Age: 75 Year
  Sex: Male
  Weight: 86 kg

DRUGS (6)
  1. VIOXX [Suspect]
     Indication: ARTHRITIS
     Route: 048
     Dates: start: 19990101, end: 20020801
  2. TOPROL-XL [Concomitant]
     Indication: HYPERTENSION
     Route: 065
  3. GLUCOPHAGE [Concomitant]
     Route: 065
  4. [COMPOSITION UNSPECIFIED] [Concomitant]
     Indication: SLEEP DISORDER
     Route: 065
  5. [COMPOSITION UNSPECIFIED] [Concomitant]
     Indication: HYPERTENSION
     Route: 065
  6. [COMPOSITION UNSPECIFIED] [Concomitant]
     Indication: GASTRIC DISORDER
     Route: 065

REACTIONS (6)
  - CARDIAC MURMUR [None]
  - CEREBROVASCULAR ACCIDENT [None]
  - CORONARY ARTERY DISEASE [None]
  - DEATH [None]
  - MYOCARDIAL INFARCTION [None]
  - OEDEMA PERIPHERAL [None]
